FAERS Safety Report 7675958-8 (Version None)
Quarter: 2011Q3

REPORT INFORMATION
  Report Type: 
  Country: None (occurrence: None)
  Receive Date: 20110811
  Receipt Date: 20110804
  Transmission Date: 20111222
  Serious: No
  Sender: FDA-Public Use
  Company Number: US-BIOGENIDEC-2011BI008740

PATIENT
  Age: 59 Year
  Sex: Female

DRUGS (2)
  1. TYSABRI [Suspect]
     Indication: MULTIPLE SCLEROSIS
     Route: 042
     Dates: start: 20080407, end: 20110101
  2. TYSABRI [Suspect]
     Route: 042
     Dates: start: 20110401

REACTIONS (11)
  - GAIT DISTURBANCE [None]
  - EXERCISE TOLERANCE DECREASED [None]
  - BACK DISORDER [None]
  - VISION BLURRED [None]
  - MIGRAINE [None]
  - FATIGUE [None]
  - URINARY INCONTINENCE [None]
  - MOBILITY DECREASED [None]
  - DRUG EFFECT DECREASED [None]
  - ABASIA [None]
  - DYSSTASIA [None]
